FAERS Safety Report 5407376-7 (Version None)
Quarter: 2007Q3

REPORT INFORMATION
  Report Type: 
  Country: None (occurrence: None)
  Receive Date: 20070807
  Receipt Date: 20070731
  Transmission Date: 20080115
  Serious: Yes (Death)
  Sender: FDA-Public Use
  Company Number: CO-ELI_LILLY_AND_COMPANY-CO200708000590

PATIENT
  Age: 68 Year
  Sex: Female

DRUGS (7)
  1. FORTEO [Suspect]
     Indication: OSTEOPOROSIS
     Dosage: 20 UG, DAILY (1/D)
     Route: 058
  2. NORFLOXACIN [Concomitant]
  3. IBUPROFEN [Concomitant]
  4. ACETAMINOPHEN [Concomitant]
  5. PREDNISOLONE [Concomitant]
  6. METOPROLOL SUCCINATE [Concomitant]
  7. SULFADIAZINE [Concomitant]

REACTIONS (1)
  - MYOCARDIAL INFARCTION [None]
